FAERS Safety Report 7818228-7 (Version None)
Quarter: 2011Q4

REPORT INFORMATION
  Report Type: 
  Country: None (occurrence: None)
  Receive Date: 20111017
  Receipt Date: 20111011
  Transmission Date: 20120403
  Serious: Yes (Hospitalization)
  Sender: FDA-Public Use
  Company Number: NL-TYCO HEALTHCARE/MALLINCKRODT-T201102061

PATIENT
  Age: 70 Year
  Sex: Female

DRUGS (3)
  1. MORPHINE [Suspect]
     Indication: BACK PAIN
     Dosage: 10 MG, UNK
  2. OMEPRAZOLE [Concomitant]
     Indication: BACK PAIN
  3. NAPROXEN [Concomitant]
     Indication: BACK PAIN

REACTIONS (1)
  - ACUTE GENERALISED EXANTHEMATOUS PUSTULOSIS [None]
